FAERS Safety Report 14730484 (Version 1)
Quarter: 2018Q2

REPORT INFORMATION
  Report Type: Spontaneous
  Country: US (occurrence: US)
  Receive Date: 20180406
  Receipt Date: 20180406
  Transmission Date: 20180711
  Serious: No
  Sender: FDA-Public Use
  Company Number: US-MYLANLABS-2018M1018362

PATIENT
  Age: 30 Year
  Sex: Female

DRUGS (2)
  1. HYOSCYAMINE. [Suspect]
     Active Substance: HYOSCYAMINE
     Indication: ABDOMINAL PAIN
     Dosage: 1 DF, Q4H AS NEEDED
     Route: 060
     Dates: start: 20180310, end: 20180313
  2. HYOSCYAMINE SULFATE. [Concomitant]
     Active Substance: HYOSCYAMINE SULFATE
     Indication: PRODUCT USED FOR UNKNOWN INDICATION
     Dosage: UNK

REACTIONS (2)
  - Anxiety [Recovered/Resolved]
  - Muscle spasms [Recovered/Resolved]

NARRATIVE: CASE EVENT DATE: 20180310
